FAERS Safety Report 5752924-0 (Version None)
Quarter: 2008Q2

REPORT INFORMATION
  Report Type: 
  Country: None (occurrence: None)
  Receive Date: 20080529
  Receipt Date: 20080522
  Transmission Date: 20081010
  Serious: Yes (Congenital Anomaly, Other)
  Sender: FDA-Public Use
  Company Number: GB-ABBOTT-08P-167-0441164-00

PATIENT
  Sex: Male

DRUGS (1)
  1. VALPROIC ACID [Suspect]
     Indication: DRUG EXPOSURE DURING PREGNANCY
     Route: 064

REACTIONS (42)
  - ABNORMAL BEHAVIOUR [None]
  - ASOCIAL BEHAVIOUR [None]
  - AUTISM SPECTRUM DISORDER [None]
  - BRANCHIAL CYST [None]
  - CAMPTODACTYLY CONGENITAL [None]
  - CHANGE IN SUSTAINED ATTENTION [None]
  - CLINODACTYLY [None]
  - CONGENITAL EYELID MALFORMATION [None]
  - CONGENITAL NAIL DISORDER [None]
  - CONGENITAL NOSE MALFORMATION [None]
  - DECREASED ACTIVITY [None]
  - DISTURBANCE IN ATTENTION [None]
  - DISTURBANCE IN SOCIAL BEHAVIOUR [None]
  - DRUG EXPOSURE DURING PREGNANCY [None]
  - DYSMORPHISM [None]
  - ENURESIS [None]
  - EXPRESSIVE LANGUAGE DISORDER [None]
  - FINE MOTOR DELAY [None]
  - FOETAL ANTICONVULSANT SYNDROME [None]
  - FOETAL HEART RATE ABNORMAL [None]
  - FOOT DEFORMITY [None]
  - HAEMANGIOMA CONGENITAL [None]
  - HIGH ARCHED PALATE [None]
  - HYPERACUSIS [None]
  - HYPERMETROPIA [None]
  - HYPERMOBILITY SYNDROME [None]
  - HYPOKINESIA [None]
  - ILLITERACY [None]
  - LEARNING DISABILITY [None]
  - LEARNING DISORDER [None]
  - LIP DISORDER [None]
  - MICROCEPHALY [None]
  - NEURODEVELOPMENTAL DISORDER [None]
  - PETIT MAL EPILEPSY [None]
  - PHALANGEAL HYPOPLASIA [None]
  - PLAGIOCEPHALY [None]
  - PSYCHOMOTOR SKILLS IMPAIRED [None]
  - SKULL MALFORMATION [None]
  - SOCIAL AVOIDANT BEHAVIOUR [None]
  - SPEECH DISORDER [None]
  - SPEECH DISORDER DEVELOPMENTAL [None]
  - UNEVALUABLE EVENT [None]
